FAERS Safety Report 12343801 (Version 3)
Quarter: 2016Q2

REPORT INFORMATION
  Report Type: Spontaneous
  Country: JP (occurrence: JP)
  Receive Date: 20160507
  Receipt Date: 20160603
  Transmission Date: 20160815
  Serious: Yes (Disabling)
  Sender: FDA-Public Use
  Company Number: JP-AMGEN-JPNSP2016037556

PATIENT
  Age: 67 Year
  Sex: Female

DRUGS (4)
  1. FLUOROURACIL. [Concomitant]
     Active Substance: FLUOROURACIL
     Indication: COLON CANCER RECURRENT
     Dosage: UNK, Q2WEEKS
     Route: 042
     Dates: start: 20140909
  2. VECTIBIX [Suspect]
     Active Substance: PANITUMUMAB
     Indication: COLON CANCER RECURRENT
     Dosage: 6 MG/KG, Q2WEEKS
     Route: 041
     Dates: start: 20140909
  3. OXALIPLATIN. [Suspect]
     Active Substance: OXALIPLATIN
     Indication: COLON CANCER RECURRENT
     Dosage: UNK, Q2WK
     Route: 041
     Dates: start: 20140909
  4. CALCIUM LEVOFOLINATE [Concomitant]
     Active Substance: LEVOLEUCOVORIN CALCIUM
     Indication: COLON CANCER RECURRENT
     Dosage: UNK, Q2WK
     Route: 041
     Dates: start: 20140909

REACTIONS (1)
  - Visual acuity reduced [Not Recovered/Not Resolved]

NARRATIVE: CASE EVENT DATE: 20150603
